FAERS Safety Report 23167827 (Version 1)
Quarter: 2023Q4

REPORT INFORMATION
  Report Type: Spontaneous
  Country: LK (occurrence: LK)
  Receive Date: 20231109
  Receipt Date: 20231109
  Transmission Date: 20240110
  Serious: Yes (Death, Hospitalization, Other)
  Sender: FDA-Public Use
  Company Number: LK-FreseniusKabi-FK202317983

PATIENT
  Age: 2 Month
  Sex: Male
  Weight: 2.9 kg

DRUGS (5)
  1. PROPOFOL [Suspect]
     Active Substance: PROPOFOL
     Indication: Induction of anaesthesia
     Dosage: SIZE 1 CLASSIC LARYNGEAL MASK AIRWAY WAS PLACED
  2. FENTANYL [Suspect]
     Active Substance: FENTANYL\FENTANYL CITRATE
     Indication: Induction of anaesthesia
     Dosage: 1 MIC/KG
     Route: 042
  3. SEVOFLURANE [Suspect]
     Active Substance: SEVOFLURANE
     Indication: Maintenance of anaesthesia
     Route: 042
  4. BUPIVACAINE [Suspect]
     Active Substance: BUPIVACAINE
     Indication: Anaesthesia
     Dosage: 0.25 % PLAIN BUPIVACAINE IN 2 ML WAS INFILTRATED
     Route: 042
  5. MORPHINE [Suspect]
     Active Substance: MORPHINE
     Indication: Analgesic therapy
     Dosage: 0.1 MG/KG
     Route: 042

REACTIONS (5)
  - Cardiac arrest [Fatal]
  - Apnoea [Fatal]
  - Oxygen saturation decreased [Fatal]
  - Bradycardia [Fatal]
  - Hypoxia [Fatal]
